FAERS Safety Report 9617363 (Version 1)
Quarter: 2013Q4

REPORT INFORMATION
  Report Type: Spontaneous
  Country: US (occurrence: None)
  Receive Date: 20131009
  Receipt Date: 20131009
  Transmission Date: 20140711
  Serious: Yes (Death)
  Sender: FDA-Public Use
  Company Number: 2013AP008547

PATIENT
  Age: 87 Year
  Sex: Female

DRUGS (5)
  1. TRAMADOL HYDROCHLORIDE TABLETS [Suspect]
     Route: 048
  2. FENTANYL [Suspect]
     Route: 048
  3. HYDROXYZINE [Suspect]
  4. DIPHENHYDRAMINE [Suspect]
     Route: 048
  5. FLUOXETINE HYDORCHLORIDE [Suspect]
     Route: 048

REACTIONS (1)
  - Cardio-respiratory arrest [None]
